FAERS Safety Report 6732246-1 (Version None)
Quarter: 2010Q2

REPORT INFORMATION
  Report Type: 
  Country: None (occurrence: None)
  Receive Date: 20100519
  Receipt Date: 20100511
  Transmission Date: 20101027
  Serious: Yes (Hospitalization)
  Sender: FDA-Public Use
  Company Number: A0860057A

PATIENT
  Sex: Female
  Weight: 54 kg

DRUGS (4)
  1. SERETIDE [Suspect]
     Indication: ALLERGIC BRONCHITIS
     Dosage: 1PUFF TWICE PER DAY
     Dates: start: 20090801
  2. DRAMIN B6 [Concomitant]
     Indication: DRUG USE FOR UNKNOWN INDICATION
     Dosage: 1TAB PER DAY
     Dates: start: 20100316
  3. UTROGESTAN [Concomitant]
     Indication: DRUG USE FOR UNKNOWN INDICATION
     Dosage: 1TAB TWICE PER DAY
     Dates: start: 20100316, end: 20100331
  4. FERROUS SULFATE TAB [Concomitant]
     Indication: DRUG USE FOR UNKNOWN INDICATION
     Dosage: 1TAB PER DAY
     Dates: start: 20100316

REACTIONS (2)
  - DRUG EXPOSURE DURING PREGNANCY [None]
  - HAEMORRHAGE [None]
